FAERS Safety Report 7555563-4 (Version None)
Quarter: 2011Q2

REPORT INFORMATION
  Report Type: 
  Country: None (occurrence: None)
  Receive Date: 20110617
  Receipt Date: 20071218
  Transmission Date: 20111010
  Serious: Yes (Other)
  Sender: FDA-Public Use
  Company Number: PHMT2007CA02300

PATIENT
  Sex: Female

DRUGS (1)
  1. SANDOSTATIN LAR [Suspect]
     Indication: CARCINOID SYNDROME
     Dosage: 30 MG, EVERY 2 WEEKS
     Route: 030
     Dates: start: 20061107

REACTIONS (5)
  - GASTROOESOPHAGEAL REFLUX DISEASE [None]
  - MACULAR DEGENERATION [None]
  - MUCOSAL EROSION [None]
  - BRONCHIAL DISORDER [None]
  - DISEASE PROGRESSION [None]
